FAERS Safety Report 25753679 (Version 1)
Quarter: 2025Q3

REPORT INFORMATION
  Report Type: Spontaneous
  Country: US (occurrence: US)
  Receive Date: 20250903
  Receipt Date: 20250903
  Transmission Date: 20251021
  Serious: No
  Sender: PFIZER
  Company Number: US-PFIZER INC-202500172373

PATIENT
  Age: 32 Year
  Sex: Male

DRUGS (1)
  1. LITFULO [Suspect]
     Active Substance: RITLECITINIB TOSYLATE
     Indication: Madarosis
     Dosage: 50 MG, 1X/DAY ((TAKE ONE PILL DAILY)
     Route: 048

REACTIONS (1)
  - Condition aggravated [Unknown]
